FAERS Safety Report 16695557 (Version 1)
Quarter: 2019Q3

REPORT INFORMATION
  Report Type: Spontaneous
  Country: JP (occurrence: JP)
  Receive Date: 20190813
  Receipt Date: 20190813
  Transmission Date: 20191004
  Serious: Yes (Hospitalization)
  Sender: FDA-Public Use
  Company Number: JP-TEVA-201908_00006723

PATIENT
  Age: 76 Year
  Sex: Male
  Weight: 54 kg

DRUGS (7)
  1. NORVASC [Concomitant]
     Active Substance: AMLODIPINE BESYLATE
     Route: 065
  2. TSUMURA RIKKUNSHITO EXTRACT GRANULES FOR ETHICAL USE [Suspect]
     Active Substance: HERBALS
     Dosage: 2 DOSAGE FORMS DAILY;
     Route: 048
     Dates: end: 20190108
  3. MAGMITT [Concomitant]
     Active Substance: MAGNESIUM OXIDE
     Route: 065
  4. LOXONIN [Concomitant]
     Active Substance: LOXOPROFEN SODIUM
     Route: 065
  5. MYSLEE [Concomitant]
     Active Substance: ZOLPIDEM TARTRATE
     Route: 065
  6. TAKEPRON CAPSULES 15 [Suspect]
     Active Substance: LANSOPRAZOLE
     Indication: GASTROOESOPHAGEAL REFLUX DISEASE
     Dosage: 30 MILLIGRAM DAILY;
     Route: 048
     Dates: start: 201806, end: 20190109
  7. RENIVACE [Concomitant]
     Active Substance: ENALAPRIL
     Route: 065

REACTIONS (1)
  - Interstitial lung disease [Recovering/Resolving]

NARRATIVE: CASE EVENT DATE: 20190109
